FAERS Safety Report 6345409-4 (Version None)
Quarter: 2009Q3

REPORT INFORMATION
  Report Type: 
  Country: None (occurrence: None)
  Receive Date: 20090909
  Receipt Date: 20090827
  Transmission Date: 20100115
  Serious: Yes (Hospitalization)
  Sender: FDA-Public Use
  Company Number: US-BAYER-200922103GPV

PATIENT
  Age: 36 Year
  Sex: Female

DRUGS (15)
  1. ALEMTUZUMAB [Suspect]
     Indication: MULTIPLE SCLEROSIS
     Route: 042
     Dates: start: 20090420, end: 20090421
  2. METHYLPREDNISOLONE [Concomitant]
     Route: 065
     Dates: start: 20090420, end: 20090421
  3. METHYLPREDNISOLONE [Concomitant]
     Dates: start: 20090422
  4. ZOLOFT [Concomitant]
     Route: 065
  5. COVERSYL [Concomitant]
     Route: 065
     Dates: start: 20070301
  6. ONDANSETRON [Concomitant]
     Route: 065
     Dates: start: 20090420, end: 20090421
  7. RANITIDINE [Concomitant]
     Route: 065
     Dates: start: 20090419, end: 20090429
  8. VALTREX [Concomitant]
     Route: 065
     Dates: start: 20090423
  9. ACETAMINOPHEN [Concomitant]
     Route: 065
     Dates: start: 20090420
  10. PHENERGAN [Concomitant]
     Route: 065
     Dates: start: 20090419, end: 20090420
  11. PHENERGAN [Concomitant]
     Route: 065
     Dates: start: 20090420, end: 20090421
  12. ZYRTEC [Concomitant]
     Route: 065
     Dates: start: 20090423, end: 20090429
  13. TEMAZEPAM [Concomitant]
     Route: 065
     Dates: start: 20090422, end: 20090423
  14. ABBICILLIN VT [Concomitant]
     Route: 048
     Dates: start: 20090428, end: 20090508
  15. VENTOLIN [Concomitant]
     Route: 065
     Dates: start: 19850101

REACTIONS (1)
  - GASTRITIS [None]
